FAERS Safety Report 24324070 (Version 2)
Quarter: 2024Q4

REPORT INFORMATION
  Report Type: Spontaneous
  Country: US (occurrence: US)
  Receive Date: 20240916
  Receipt Date: 20241001
  Transmission Date: 20250114
  Serious: No
  Sender: ROCHE
  Company Number: US-ROCHE-10000076724

PATIENT
  Sex: Female

DRUGS (2)
  1. PHESGO [Suspect]
     Active Substance: HYALURONIDASE-ZZXF\PERTUZUMAB\TRASTUZUMAB
     Indication: Hormone receptor positive breast cancer
     Route: 058
  2. TAXOTERE [Concomitant]
     Active Substance: DOCETAXEL
     Indication: Hormone receptor positive breast cancer

REACTIONS (6)
  - Diarrhoea [Not Recovered/Not Resolved]
  - Vomiting [Unknown]
  - Dyspnoea exertional [Unknown]
  - Nausea [Unknown]
  - Tachycardia [Unknown]
  - Hypovolaemia [Unknown]
